FAERS Safety Report 7111813-X (Version None)
Quarter: 2010Q4

REPORT INFORMATION
  Report Type: 
  Country: None (occurrence: None)
  Receive Date: 20101119
  Receipt Date: 20101111
  Transmission Date: 20110411
  Serious: Yes (Hospitalization)
  Sender: FDA-Public Use
  Company Number: US-BIOGENIDEC-2008BI005174

PATIENT
  Age: 56 Year
  Sex: Female

DRUGS (2)
  1. AVONEX [Suspect]
     Indication: MULTIPLE SCLEROSIS
     Route: 030
     Dates: start: 20000915, end: 20041010
  2. AVONEX [Suspect]
     Route: 030
     Dates: start: 20041017

REACTIONS (2)
  - INJURY [None]
  - INTERVERTEBRAL DISC DISORDER [None]
